FAERS Safety Report 4522382-2 (Version None)
Quarter: 2004Q4

REPORT INFORMATION
  Report Type: 
  Country: None (occurrence: None)
  Receive Date: 20041209
  Receipt Date: 20041130
  Transmission Date: 20050328
  Serious: Yes (Life-Threatening, Hospitalization)
  Sender: FDA-Public Use
  Company Number: 387237

PATIENT
  Age: 55 Year
  Sex: Male

DRUGS (4)
  1. ARTIST [Suspect]
     Indication: HYPERTENSION
     Dosage: 10MG PER DAY
     Route: 048
     Dates: start: 20030310, end: 20040106
  2. NORVASC [Suspect]
     Dates: start: 20030208
  3. DIOVAN [Suspect]
     Dates: start: 20021210
  4. ADALAT [Suspect]
     Dates: start: 20021227, end: 20030207

REACTIONS (4)
  - BLOOD PRESSURE DECREASED [None]
  - BRADYCARDIA [None]
  - HEART RATE DECREASED [None]
  - LOSS OF CONSCIOUSNESS [None]
